FAERS Safety Report 25113431 (Version 1)
Quarter: 2025Q1

REPORT INFORMATION
  Report Type: Spontaneous
  Country: FR (occurrence: FR)
  Receive Date: 20250324
  Receipt Date: 20250324
  Transmission Date: 20250408
  Serious: Yes (Hospitalization, Other)
  Sender: ALEXION PHARMACEUTICALS
  Company Number: None

PATIENT
  Age: 71 Year

DRUGS (1)
  1. IMFINZI [Suspect]
     Active Substance: DURVALUMAB
     Indication: Gallbladder adenocarcinoma

REACTIONS (4)
  - Chest pain [Recovered/Resolved]
  - Myocarditis [Recovering/Resolving]
  - Dyspnoea [Recovered/Resolved]
  - Condition aggravated [Recovered/Resolved]
